FAERS Safety Report 7600085-5 (Version None)
Quarter: 2011Q2

REPORT INFORMATION
  Report Type: 
  Country: None (occurrence: None)
  Receive Date: 20110629
  Receipt Date: 20110616
  Transmission Date: 20111010
  Serious: Yes (Other)
  Sender: FDA-Public Use
  Company Number: 2011MA007668

PATIENT
  Age: 53 Year
  Sex: Female

DRUGS (1)
  1. PHENYTOIN [Suspect]
     Indication: THROMBOSIS PROPHYLAXIS
     Dosage: 300 MG;

REACTIONS (6)
  - ERYTHEMA MULTIFORME [None]
  - SWELLING FACE [None]
  - DERMATITIS BULLOUS [None]
  - RASH [None]
  - PYREXIA [None]
  - SKIN LESION [None]
